FAERS Safety Report 23010522 (Version 2)
Quarter: 2023Q4

REPORT INFORMATION
  Report Type: Spontaneous
  Country: US (occurrence: US)
  Receive Date: 20230929
  Receipt Date: 20231026
  Transmission Date: 20240110
  Serious: No
  Sender: FDA-Public Use
  Company Number: US-BAYER-2023A133566

PATIENT
  Sex: Female

DRUGS (1)
  1. ESTRADIOL [Suspect]
     Active Substance: ESTRADIOL
     Dosage: UNK
     Route: 062

REACTIONS (9)
  - Incorrect product administration duration [None]
  - Device adhesion issue [None]
  - Arthralgia [None]
  - Alopecia [None]
  - Breast tenderness [None]
  - Insomnia [None]
  - Irritability [None]
  - Brain fog [None]
  - Device defective [None]
